FAERS Safety Report 8865952 (Version 1)
Quarter: 2012Q4

REPORT INFORMATION
  Report Type: Report from Study
  Country: US (occurrence: US)
  Receive Date: 20121025
  Receipt Date: 20121025
  Transmission Date: 20130627
  Serious: No
  Sender: FDA-Public Use
  Company Number: US-ABBOTT-12P-163-0952092-00

PATIENT
  Sex: Female
  Weight: 59.02 kg

DRUGS (3)
  1. LUPRON DEPOT 3.75 MG [Suspect]
     Indication: ENDOMETRIOSIS
     Dates: start: 201205
  2. VALTREX [Concomitant]
     Indication: HERPES VIRUS INFECTION
  3. DOXYCYCLINE [Concomitant]
     Indication: ACNE

REACTIONS (13)
  - Vision blurred [Recovered/Resolved]
  - Migraine [Recovered/Resolved]
  - Anxiety [Recovered/Resolved]
  - Migraine [Recovered/Resolved]
  - Vision blurred [Recovered/Resolved]
  - Anxiety [Recovered/Resolved]
  - Hot flush [Not Recovered/Not Resolved]
  - Hyperhidrosis [Not Recovered/Not Resolved]
  - Insomnia [Not Recovered/Not Resolved]
  - Feeling hot [Not Recovered/Not Resolved]
  - Chest discomfort [Recovered/Resolved]
  - Chest pain [Recovered/Resolved]
  - Ill-defined disorder [Recovered/Resolved]
